FAERS Safety Report 4705127-2 (Version None)
Quarter: 2005Q3

REPORT INFORMATION
  Report Type: 
  Country: None (occurrence: None)
  Receive Date: 20050701
  Receipt Date: 20050526
  Transmission Date: 20060218
  Serious: Yes (Hospitalization)
  Sender: FDA-Public Use
  Company Number: 200514902GDDC

PATIENT
  Age: 93 Year
  Sex: Male

DRUGS (7)
  1. FUROSEMIDE [Suspect]
     Indication: OEDEMA PERIPHERAL
     Dates: start: 20020501
  2. GLIBENCLAMIDE [Suspect]
     Route: 048
     Dates: start: 20030201
  3. SPIRONOLACTONE [Suspect]
     Dates: start: 20030501
  4. BUFORMIN [Suspect]
     Dates: start: 20030201
  5. VOGLIBOSE [Suspect]
     Dosage: DOSE: UNK
  6. CANDESARTAN [Suspect]
     Indication: HYPERTENSION
  7. NIFEDIPINE [Suspect]
     Indication: HYPERTENSION

REACTIONS (5)
  - DEHYDRATION [None]
  - DEPRESSED LEVEL OF CONSCIOUSNESS [None]
  - DYSPNOEA [None]
  - LACTIC ACIDOSIS [None]
  - RENAL FAILURE [None]
